FAERS Safety Report 4661330-1 (Version None)
Quarter: 2005Q2

REPORT INFORMATION
  Report Type: 
  Country: None (occurrence: None)
  Receive Date: 20050511
  Receipt Date: 20050427
  Transmission Date: 20051028
  Serious: No
  Sender: FDA-Public Use
  Company Number: 05P-229-0286411-00

PATIENT
  Age: 40 Year
  Sex: Female

DRUGS (3)
  1. DEPAKENE [Suspect]
     Indication: EPILEPSY
     Dosage: 200 MG, 3 IN 1 D, ORAL; 200 MG, 3 IN 1 D, ORAL; 200 MG, 5 IN 1 D, ORAL
     Route: 048
     Dates: end: 20041220
  2. DEPAKENE [Suspect]
     Indication: EPILEPSY
     Dosage: 200 MG, 3 IN 1 D, ORAL; 200 MG, 3 IN 1 D, ORAL; 200 MG, 5 IN 1 D, ORAL
     Route: 048
     Dates: start: 20041221, end: 20050103
  3. DEPAKENE [Suspect]
     Indication: EPILEPSY
     Dosage: 200 MG, 3 IN 1 D, ORAL; 200 MG, 3 IN 1 D, ORAL; 200 MG, 5 IN 1 D, ORAL
     Route: 048
     Dates: start: 20050103

REACTIONS (3)
  - DRUG DISPENSING ERROR [None]
  - MEDICATION ERROR [None]
  - PETIT MAL EPILEPSY [None]
